FAERS Safety Report 7167190-1 (Version None)
Quarter: 2010Q4

REPORT INFORMATION
  Report Type: 
  Country: None (occurrence: None)
  Receive Date: 20101216
  Receipt Date: 20101203
  Transmission Date: 20110411
  Serious: Yes (Other)
  Sender: FDA-Public Use
  Company Number: PHHY2010US82717

PATIENT
  Sex: Female

DRUGS (2)
  1. VIVELLE-DOT [Suspect]
     Dosage: 0.037 MG, UNK
     Route: 062
  2. VIVELLE-DOT [Suspect]
     Route: 062

REACTIONS (8)
  - BACK PAIN [None]
  - CHEST PAIN [None]
  - ERYTHEMA [None]
  - FLUSHING [None]
  - MALAISE [None]
  - MUSCLE SPASMS [None]
  - PAIN IN EXTREMITY [None]
  - PALPITATIONS [None]
